FAERS Safety Report 22210053 (Version 6)
Quarter: 2023Q2

REPORT INFORMATION
  Report Type: Spontaneous
  Country: US (occurrence: US)
  Receive Date: 20230414
  Receipt Date: 20230509
  Transmission Date: 20230721
  Serious: No
  Sender: FDA-Public Use
  Company Number: US-AMGEN-USASP2023059285

PATIENT
  Age: 65 Year
  Sex: Female

DRUGS (2)
  1. NEULASTA [Suspect]
     Active Substance: PEGFILGRASTIM
     Indication: Breast cancer
     Dosage: UNK
     Route: 065
     Dates: start: 20230324
  2. NEULASTA [Suspect]
     Active Substance: PEGFILGRASTIM
     Dosage: UNK
     Route: 065
     Dates: start: 20230324

REACTIONS (3)
  - Drug dose omission by device [Unknown]
  - White blood cell disorder [Unknown]
  - Device occlusion [Unknown]

NARRATIVE: CASE EVENT DATE: 20230301
